FAERS Safety Report 6681190-7 (Version None)
Quarter: 2010Q2

REPORT INFORMATION
  Report Type: 
  Country: None (occurrence: None)
  Receive Date: 20100414
  Receipt Date: 20100401
  Transmission Date: 20101027
  Serious: Yes (Hospitalization)
  Sender: FDA-Public Use
  Company Number: US-ELI_LILLY_AND_COMPANY-US201004000555

PATIENT
  Sex: Female
  Weight: 92.517 kg

DRUGS (4)
  1. BYETTA [Suspect]
     Indication: TYPE 2 DIABETES MELLITUS
     Dosage: 5 UG, 2/D
     Route: 058
     Dates: start: 20070501, end: 20070601
  2. BYETTA [Suspect]
     Dosage: 10 UG, 2/D
     Route: 058
     Dates: start: 20070601
  3. METFORMIN HCL [Concomitant]
     Indication: TYPE 2 DIABETES MELLITUS
     Dosage: UNK, EACH EVENING
     Route: 048
  4. SINGULAIR [Concomitant]
     Indication: BRONCHITIS
     Dosage: UNK, AS NEEDED

REACTIONS (7)
  - ALOPECIA [None]
  - BLOOD TESTOSTERONE INCREASED [None]
  - HYPERTRICHOSIS [None]
  - HYSTERECTOMY [None]
  - MENIERE'S DISEASE [None]
  - SMEAR CERVIX ABNORMAL [None]
  - UTERINE POLYP [None]
